FAERS Safety Report 14670414 (Version 2)
Quarter: 2018Q3

REPORT INFORMATION
  Report Type: Report from Study
  Country: CA (occurrence: CA)
  Receive Date: 20180322
  Receipt Date: 20180726
  Transmission Date: 20181010
  Serious: Yes (Other)
  Sender: FDA-Public Use
  Company Number: CA-ALLERGAN-1815458US

PATIENT
  Age: 34 Year
  Sex: Female

DRUGS (7)
  1. XOLAIR [Suspect]
     Active Substance: OMALIZUMAB
     Indication: ASTHMA
     Dosage: 375 MG, BI?WEEKLY
     Route: 058
     Dates: start: 20141117
  2. CITALOPRAM HYDROBROMIDE UNK [Suspect]
     Active Substance: CITALOPRAM HYDROBROMIDE
     Indication: ANXIETY
     Dosage: UNK
     Route: 065
  3. XOLAIR [Suspect]
     Active Substance: OMALIZUMAB
     Dosage: UNK
     Route: 058
     Dates: start: 20170830
  4. SYMBICORT [Concomitant]
     Active Substance: BUDESONIDE\FORMOTEROL FUMARATE DIHYDRATE
     Dosage: UNK
     Route: 065
  5. XOLAIR [Suspect]
     Active Substance: OMALIZUMAB
     Dosage: UNK
     Route: 058
     Dates: start: 20170426
  6. XOLAIR [Suspect]
     Active Substance: OMALIZUMAB
     Dosage: UNK
     Route: 058
     Dates: start: 20170705
  7. SINGULAIR [Concomitant]
     Active Substance: MONTELUKAST SODIUM
     Dosage: UNK
     Route: 065

REACTIONS (22)
  - Dry mouth [Unknown]
  - Cough [Unknown]
  - Nausea [Unknown]
  - Hypersensitivity [Recovered/Resolved]
  - Flushing [Unknown]
  - Procedural pain [Unknown]
  - Stress [Unknown]
  - Throat irritation [Unknown]
  - Drug ineffective [Unknown]
  - Fall [Unknown]
  - Foot fracture [Unknown]
  - Mood altered [Unknown]
  - Panic attack [Unknown]
  - Swelling [Unknown]
  - Wheezing [Unknown]
  - Insomnia [Unknown]
  - Allergy to chemicals [Unknown]
  - Depressive symptom [Unknown]
  - Pain [Unknown]
  - Anxiety [Unknown]
  - Depression [Unknown]
  - Swelling face [Unknown]

NARRATIVE: CASE EVENT DATE: 20141117
